FAERS Safety Report 9756429 (Version 1)
Quarter: 2013Q4

REPORT INFORMATION
  Report Type: Spontaneous
  Country: US (occurrence: US)
  Receive Date: 20131213
  Receipt Date: 20131213
  Transmission Date: 20140711
  Serious: No
  Sender: FDA-Public Use
  Company Number: US-GLAXOSMITHKLINE-A1041002A

PATIENT
  Age: 29 Year
  Sex: Male

DRUGS (3)
  1. NICODERM CQ CLEAR 21MG [Suspect]
     Indication: EX-TOBACCO USER
  2. UNSPECIFIED MEDICATION [Concomitant]
  3. INVEGA [Concomitant]

REACTIONS (5)
  - Application site erythema [Recovered/Resolved]
  - Pain [Not Recovered/Not Resolved]
  - Sensation of heaviness [Unknown]
  - Sensation of pressure [Unknown]
  - Drug ineffective [Unknown]
